FAERS Safety Report 6549800-2 (Version None)
Quarter: 2010Q1

REPORT INFORMATION
  Report Type: 
  Country: None (occurrence: None)
  Receive Date: 20100119
  Receipt Date: 20100104
  Transmission Date: 20100710
  Serious: Yes (Hospitalization, Disabling)
  Sender: FDA-Public Use
  Company Number: 2009AC000229

PATIENT
  Age: 71 Year
  Sex: Male

DRUGS (52)
  1. DIGOXIN [Suspect]
     Dosage: 0.125 MG;QD;PO
     Route: 048
     Dates: start: 20000801
  2. AMARYL [Concomitant]
  3. LASIX [Concomitant]
  4. KLOR-CON [Concomitant]
  5. ADVAIR [Concomitant]
  6. ZOCOR [Concomitant]
  7. AMIODARONE HCL [Concomitant]
  8. TEMAZEPAM [Concomitant]
  9. ASPIRIN [Concomitant]
  10. LISINOPRIL [Concomitant]
  11. COUMADIN [Concomitant]
  12. DOXYCYCLINE [Concomitant]
  13. PRILOSEC [Concomitant]
  14. NASACORT [Concomitant]
  15. SINGULAIR [Concomitant]
  16. SIMVASTATIN [Concomitant]
  17. ZYRTEC [Concomitant]
  18. LORTAB [Concomitant]
  19. LYRICA [Concomitant]
  20. SOMA [Concomitant]
  21. FERROUS SULFATE TAB [Concomitant]
  22. ACTOS [Concomitant]
  23. GLIMIPIRIDE [Concomitant]
  24. PROPOXYPHENE NAPSYLATE AND ACETAMINOPHEN [Concomitant]
  25. MOBIC [Concomitant]
  26. COREG [Concomitant]
  27. COUMADIN [Concomitant]
  28. FUROSEMIDE [Concomitant]
  29. GLIMEPIRIDE [Concomitant]
  30. HYDROCODONE [Concomitant]
  31. SINGULAIR [Concomitant]
  32. SYNTHROID [Concomitant]
  33. TEMAZEPAM [Concomitant]
  34. ZYRTEC [Concomitant]
  35. COUMADIN [Concomitant]
  36. POTASSIIUM CHLORIDE [Concomitant]
  37. NASACORT [Concomitant]
  38. HYDROCODONE [Concomitant]
  39. SINGULAIR [Concomitant]
  40. SYNTHROID [Concomitant]
  41. TEMAZEPAM [Concomitant]
  42. ZOCOR [Concomitant]
  43. LASIX [Concomitant]
  44. LISINOPRIL [Concomitant]
  45. COREG [Concomitant]
  46. ADVAIR [Concomitant]
  47. AMIODARONE [Concomitant]
  48. GLIMEPIRIDE [Concomitant]
  49. HUMULIN N [Concomitant]
  50. CYCLOBENZAPRINE [Concomitant]
  51. WARFARIN SODIUM [Concomitant]
  52. LEVAQUIN [Concomitant]

REACTIONS (45)
  - ACUTE RESPIRATORY FAILURE [None]
  - ANAEMIA [None]
  - ASTHENIA [None]
  - ATRIAL FIBRILLATION [None]
  - BACK PAIN [None]
  - BRADYCARDIA [None]
  - BRONCHITIS [None]
  - BUNDLE BRANCH BLOCK LEFT [None]
  - CARDIAC FAILURE [None]
  - CARDIOMEGALY [None]
  - CARDIOMYOPATHY [None]
  - CHRONIC OBSTRUCTIVE PULMONARY DISEASE [None]
  - CORONARY ARTERY DISEASE [None]
  - COUGH [None]
  - DEEP VEIN THROMBOSIS [None]
  - DIABETES MELLITUS [None]
  - DIARRHOEA [None]
  - DIVERTICULITIS [None]
  - FALL [None]
  - FRACTURE [None]
  - HYPERTENSION [None]
  - HYPOGLYCAEMIA [None]
  - HYPOTENSION [None]
  - HYPOVOLAEMIA [None]
  - ISCHAEMIC CARDIOMYOPATHY [None]
  - LAZINESS [None]
  - MULTIPLE INJURIES [None]
  - MUSCULOSKELETAL PAIN [None]
  - MYOCARDIAL INFARCTION [None]
  - NAUSEA [None]
  - NECK MASS [None]
  - NEOPLASM [None]
  - NON-HODGKIN'S LYMPHOMA [None]
  - PAIN [None]
  - POLYNEUROPATHY [None]
  - PULMONARY EMBOLISM [None]
  - PYREXIA [None]
  - RENAL FAILURE ACUTE [None]
  - RESPIRATORY DISTRESS [None]
  - SEPSIS [None]
  - SOMNOLENCE [None]
  - SPINAL OSTEOARTHRITIS [None]
  - TYPE 2 DIABETES MELLITUS [None]
  - VOMITING [None]
  - WOUND [None]
